FAERS Safety Report 5949050-4 (Version None)
Quarter: 2008Q4

REPORT INFORMATION
  Report Type: 
  Country: None (occurrence: None)
  Receive Date: 20081021
  Receipt Date: 20080422
  Transmission Date: 20090506
  Serious: Yes (Other)
  Sender: FDA-Public Use
  Company Number: US-WYE-H03766608

PATIENT
  Age: 58 Year

DRUGS (2)
  1. PREMARIN [Suspect]
  2. OGEN [Suspect]

REACTIONS (1)
  - BREAST CANCER [None]
